FAERS Safety Report 8013092-8 (Version None)
Quarter: 2011Q4

REPORT INFORMATION
  Report Type: 
  Country: None (occurrence: None)
  Receive Date: 20111229
  Receipt Date: 20111220
  Transmission Date: 20120403
  Serious: Yes (Hospitalization)
  Sender: FDA-Public Use
  Company Number: US-BAYER-2011-007227

PATIENT
  Age: 27 Year
  Sex: Female
  Weight: 81.633 kg

DRUGS (9)
  1. NUVARING [Concomitant]
     Indication: CONTRACEPTION
     Dosage: UNK
     Dates: start: 20080801, end: 20081101
  2. TOPAMAX [Concomitant]
     Indication: MIGRAINE
     Dosage: UNK
     Dates: start: 20080601
  3. GARDASIL [Concomitant]
  4. ORTHO EVRA [Concomitant]
     Dosage: UNK
     Dates: start: 20070901, end: 20080201
  5. YAZ [Suspect]
     Indication: ACNE
  6. YAZ [Suspect]
     Indication: ORAL CONTRACEPTION
     Dosage: UNK UNK, QD
     Route: 048
     Dates: start: 20080201, end: 20081101
  7. ORTHO TRI-CYCLEN [Concomitant]
     Dosage: UNK
     Dates: start: 20080101
  8. LEVOTHYROXINE SODIUM [Concomitant]
     Dosage: 25 ?G, UNK
     Route: 048
  9. NAPROXEN [Concomitant]
     Dosage: 550 MG, UNK
     Route: 048
     Dates: start: 20080801

REACTIONS (7)
  - ABDOMINAL PAIN [None]
  - PAIN [None]
  - NAUSEA [None]
  - BILE DUCT STONE [None]
  - CHOLECYSTITIS ACUTE [None]
  - CHOLECYSTITIS CHRONIC [None]
  - VOMITING [None]
